FAERS Safety Report 24006304 (Version 2)
Quarter: 2024Q2

REPORT INFORMATION
  Report Type: Spontaneous
  Country: US (occurrence: US)
  Receive Date: 20240624
  Receipt Date: 20240629
  Transmission Date: 20240715
  Serious: Yes (Life-Threatening, Hospitalization, Other)
  Sender: FDA-Public Use
  Company Number: US-TORRENT-00013629

PATIENT
  Age: 18 Year
  Sex: Female

DRUGS (1)
  1. LAMOTRIGINE [Suspect]
     Active Substance: LAMOTRIGINE
     Indication: Product used for unknown indication
     Route: 065

REACTIONS (11)
  - Status epilepticus [Recovering/Resolving]
  - Pneumonia aspiration [Recovering/Resolving]
  - Drug reaction with eosinophilia and systemic symptoms [Recovering/Resolving]
  - Brain oedema [Recovering/Resolving]
  - Human herpesvirus 6 encephalitis [Recovering/Resolving]
  - Human herpesvirus 6 infection reactivation [Recovered/Resolved]
  - Acute respiratory distress syndrome [Recovered/Resolved]
  - Blood alkaline phosphatase increased [Recovering/Resolving]
  - Tachycardia [Recovering/Resolving]
  - Aspartate aminotransferase increased [Recovering/Resolving]
  - Alanine aminotransferase increased [Recovering/Resolving]
